FAERS Safety Report 21620718 (Version 1)
Quarter: 2022Q4

REPORT INFORMATION
  Report Type: Report from Study
  Country: EG (occurrence: EG)
  Receive Date: 20221121
  Receipt Date: 20221121
  Transmission Date: 20230113
  Serious: Yes (Other)
  Sender: FDA-Public Use
  Company Number: EG-002147023-NVSC2022EG259513

PATIENT
  Sex: Male

DRUGS (3)
  1. OMNITROPE [Suspect]
     Active Substance: SOMATROPIN
     Indication: Growth hormone deficiency
     Dosage: 1.3 MG, QD (STOP DATE: A FEW MONTHS AGO)
     Route: 058
     Dates: start: 20210107
  2. COVERAM [Concomitant]
     Active Substance: AMLODIPINE\PERINDOPRIL
     Indication: Hypertension
     Dosage: 1 DOSAGE FORM, QD (STARTED SINCE HE WAS 7 YEARS OLD)
     Route: 065
  3. FERROTONE [Concomitant]
     Indication: Nutritional supplementation
     Dosage: 1 DOSAGE FORM, QD (STARTED 3 YEARS AGO AND ONGOING BUT THE PATIENT DOES NOT TAKE THEM REGULARY)
     Route: 048

REACTIONS (2)
  - Delayed puberty [Not Recovered/Not Resolved]
  - Drug ineffective [Not Recovered/Not Resolved]
